FAERS Safety Report 26118609 (Version 1)
Quarter: 2025Q4

REPORT INFORMATION
  Report Type: Spontaneous
  Country: CN (occurrence: CN)
  Receive Date: 20251203
  Receipt Date: 20251203
  Transmission Date: 20260117
  Serious: Yes (Other)
  Sender: BEIGENE
  Company Number: CN-BEONEMEDICINES-BGN-2025-021262

PATIENT
  Age: 62 Year
  Sex: Male
  Weight: 70 kg

DRUGS (8)
  1. TISLELIZUMAB [Suspect]
     Active Substance: TISLELIZUMAB
     Indication: Squamous cell carcinoma of lung
     Dosage: 200 MILLIGRAM, Q3WK
     Dates: start: 20251031
  2. TISLELIZUMAB [Suspect]
     Active Substance: TISLELIZUMAB
     Indication: Metastases to lung
     Dosage: 200 MILLIGRAM, Q3WK
     Route: 041
     Dates: start: 20251031
  3. TISLELIZUMAB [Suspect]
     Active Substance: TISLELIZUMAB
     Dosage: 200 MILLIGRAM, Q3WK
     Route: 041
     Dates: start: 20251031
  4. TISLELIZUMAB [Suspect]
     Active Substance: TISLELIZUMAB
     Dosage: 200 MILLIGRAM, Q3WK
     Dates: start: 20251031
  5. CARBOPLATIN [Suspect]
     Active Substance: CARBOPLATIN
     Indication: Squamous cell carcinoma of lung
     Dosage: 450 MILLIGRAM, Q3WK
     Route: 041
     Dates: start: 20251101
  6. CARBOPLATIN [Suspect]
     Active Substance: CARBOPLATIN
     Indication: Metastases to lung
     Dosage: 450 MILLIGRAM, Q3WK
     Dates: start: 20251101
  7. PACLITAXEL [Suspect]
     Active Substance: PACLITAXEL
     Indication: Squamous cell carcinoma of lung
     Dosage: 400 MILLIGRAM, Q3WK
     Route: 041
     Dates: start: 20251101
  8. PACLITAXEL [Suspect]
     Active Substance: PACLITAXEL
     Indication: Metastases to lung
     Dosage: 400 MILLIGRAM, Q3WK
     Dates: start: 20251101

REACTIONS (1)
  - Myelosuppression [Unknown]

NARRATIVE: CASE EVENT DATE: 20251103
